FAERS Safety Report 19117028 (Version 11)
Quarter: 2025Q2

REPORT INFORMATION
  Report Type: Spontaneous
  Country: US (occurrence: US)
  Receive Date: 20210409
  Receipt Date: 20250630
  Transmission Date: 20250717
  Serious: Yes (Other)
  Sender: PFIZER
  Company Number: US-PFIZER INC-2021351622

PATIENT
  Age: 68 Year
  Sex: Female
  Weight: 46.72 kg

DRUGS (8)
  1. XELJANZ XR [Suspect]
     Active Substance: TOFACITINIB CITRATE
     Indication: Rheumatoid arthritis
     Dosage: 11MG PO (PER ORAL) DAILY
     Route: 048
  2. XELJANZ XR [Suspect]
     Active Substance: TOFACITINIB CITRATE
  3. ALENDRONATE SODIUM [Concomitant]
     Active Substance: ALENDRONATE SODIUM
  4. CALCIUM [Concomitant]
     Active Substance: CALCIUM
  5. LOTREL [Concomitant]
     Active Substance: AMLODIPINE BESYLATE\BENAZEPRIL HYDROCHLORIDE
     Indication: Hypertension
     Dosage: 1 DF, 1X/DAY (EVERY NIGHT)
  6. HERBALS\TURMERIC [Concomitant]
     Active Substance: HERBALS\TURMERIC
  7. TYLENOL [Concomitant]
     Active Substance: ACETAMINOPHEN
  8. ALEVE [Concomitant]
     Active Substance: NAPROXEN SODIUM

REACTIONS (7)
  - Limb operation [Unknown]
  - Feeling abnormal [Unknown]
  - Confusional state [Unknown]
  - Sinusitis [Recovered/Resolved]
  - Bronchitis [Recovered/Resolved]
  - Nasopharyngitis [Recovered/Resolved]
  - Speech disorder [Unknown]

NARRATIVE: CASE EVENT DATE: 20250401
